FAERS Safety Report 13129877 (Version 1)
Quarter: 2017Q1

REPORT INFORMATION
  Report Type: Spontaneous
  Country: US (occurrence: US)
  Receive Date: 20170118
  Receipt Date: 20170118
  Transmission Date: 20170428
  Serious: Yes (Disabling)
  Sender: FDA-Public Use
  Company Number: None

PATIENT
  Age: 51 Year
  Sex: Female
  Weight: 56.7 kg

DRUGS (3)
  1. NITROFURANTOIN. [Suspect]
     Active Substance: NITROFURANTOIN
     Indication: URINARY TRACT INFECTION
     Dosage: ?          QUANTITY:1 CAPSULE(S);?
     Route: 048
     Dates: start: 20170117, end: 20170118
  2. URICALM [Concomitant]
  3. IBUPROFEN PM [Concomitant]
     Active Substance: DIPHENHYDRAMINE CITRATE\IBUPROFEN

REACTIONS (8)
  - Nausea [None]
  - Chills [None]
  - Retching [None]
  - Oropharyngeal pain [None]
  - Impaired work ability [None]
  - Pain [None]
  - Crying [None]
  - Headache [None]

NARRATIVE: CASE EVENT DATE: 20170118
